FAERS Safety Report 20557085 (Version 4)
Quarter: 2022Q2

REPORT INFORMATION
  Report Type: Spontaneous
  Country: CO (occurrence: CO)
  Receive Date: 20220307
  Receipt Date: 20220401
  Transmission Date: 20220721
  Serious: Yes (Hospitalization, Other)
  Sender: FDA-Public Use
  Company Number: CO-AUROBINDO-AUR-APL-2022-006794

PATIENT
  Age: 51 Year
  Sex: Male

DRUGS (1)
  1. FOLOTYN [Suspect]
     Active Substance: PRALATREXATE
     Indication: Non-Hodgkin^s lymphoma
     Dosage: 52 MILLIGRAM, EVERY WEEK
     Route: 042
     Dates: start: 20220204

REACTIONS (4)
  - Cerebral infarction [Recovering/Resolving]
  - Movement disorder [Recovering/Resolving]
  - Neurological decompensation [Unknown]
  - Blood pressure decreased [Unknown]

NARRATIVE: CASE EVENT DATE: 20220216
